FAERS Safety Report 8549675-6 (Version None)
Quarter: 2012Q3

REPORT INFORMATION
  Report Type: 
  Country: None (occurrence: None)
  Receive Date: 20120730
  Receipt Date: 20120723
  Transmission Date: 20120928
  Serious: Yes (Other)
  Sender: FDA-Public Use
  Company Number: BR-PFIZER INC-2012178429

PATIENT
  Age: 39 Year
  Sex: Female

DRUGS (1)
  1. XALATAN [Suspect]
     Indication: GLAUCOMA
     Dosage: 3 UG, 1X/DAY (ONE DROP EACH EYE ONCE A DAY)
     Route: 047
     Dates: start: 20040101

REACTIONS (1)
  - GLAUCOMA [None]
